FAERS Safety Report 10041216 (Version 1)
Quarter: 2014Q1

REPORT INFORMATION
  Report Type: Spontaneous
  Country: AU (occurrence: None)
  Receive Date: 20140325
  Receipt Date: 20140325
  Transmission Date: 20141002
  Serious: Yes (Other)
  Sender: FDA-Public Use
  Company Number: 2013000557

PATIENT
  Age: 81 Year
  Sex: Female
  Weight: 57 kg

DRUGS (3)
  1. ACEON [Suspect]
     Indication: ESSENTIAL HYPERTENSION
     Route: 048
     Dates: start: 19941216, end: 19950116
  2. NATRILIX [Suspect]
     Indication: ESSENTIAL HYPERTENSION
     Route: 048
     Dates: start: 19941223, end: 19950116
  3. ZOCOR (SIMVASTATIN) [Suspect]
     Indication: METABOLIC DISORDER
     Route: 048
     Dates: start: 199310, end: 19950116

REACTIONS (6)
  - Confusional state [None]
  - Abdominal pain [None]
  - Hypokalaemia [None]
  - Hypochloraemia [None]
  - Hyponatraemia [None]
  - Back pain [None]
